FAERS Safety Report 6344287-7 (Version None)
Quarter: 2009Q3

REPORT INFORMATION
  Report Type: 
  Country: None (occurrence: None)
  Receive Date: 20090908
  Receipt Date: 20090603
  Transmission Date: 20100115
  Serious: Yes (Congenital Anomaly)
  Sender: FDA-Public Use
  Company Number: GB-ASTRAZENECA-2009GB01290

PATIENT
  Age: 39 Week
  Sex: Female

DRUGS (4)
  1. SYMBICORT [Suspect]
     Indication: ASTHMA
     Route: 064
     Dates: start: 20040101
  2. BRICANYL [Concomitant]
     Route: 064
  3. FYBOGEL [Concomitant]
  4. LACTULOSE [Concomitant]

REACTIONS (1)
  - TRANSPOSITION OF THE GREAT VESSELS [None]
